FAERS Safety Report 7482194-7 (Version None)
Quarter: 2011Q2

REPORT INFORMATION
  Report Type: 
  Country: None (occurrence: None)
  Receive Date: 20110516
  Receipt Date: 20110509
  Transmission Date: 20111010
  Serious: Yes (Other)
  Sender: FDA-Public Use
  Company Number: US-PFIZER INC-2011099293

PATIENT
  Sex: Female

DRUGS (1)
  1. PRISTIQ [Suspect]
     Dosage: UNK

REACTIONS (6)
  - INSOMNIA [None]
  - ANXIETY [None]
  - DEPRESSION [None]
  - RESTLESSNESS [None]
  - ABNORMAL DREAMS [None]
  - HYPERHIDROSIS [None]
